FAERS Safety Report 9808153 (Version 2)
Quarter: 2014Q1

REPORT INFORMATION
  Report Type: Spontaneous
  Country: HR (occurrence: HR)
  Receive Date: 20140110
  Receipt Date: 20140110
  Transmission Date: 20141002
  Serious: Yes (Other)
  Sender: FDA-Public Use
  Company Number: HR-JNJFOC-20131201599

PATIENT
  Age: 60 Year
  Sex: Female

DRUGS (7)
  1. TRAMAL RETARD [Suspect]
     Indication: PAIN
     Route: 048
     Dates: start: 20130901
  2. TRAMAL [Suspect]
     Indication: PAIN
     Route: 048
  3. PHYSIOTENS [Suspect]
     Indication: HYPERTENSION
     Route: 048
     Dates: start: 20131001
  4. CARVETREND [Concomitant]
     Indication: PRODUCT USED FOR UNKNOWN INDICATION
     Route: 048
     Dates: start: 20120101
  5. PRAXITEN SP [Concomitant]
     Indication: PRODUCT USED FOR UNKNOWN INDICATION
     Route: 048
     Dates: start: 20120101
  6. SYMBICORT [Concomitant]
     Indication: PRODUCT USED FOR UNKNOWN INDICATION
     Route: 065
  7. ESCITALOPRAM OXALATE [Concomitant]
     Indication: PRODUCT USED FOR UNKNOWN INDICATION
     Route: 065

REACTIONS (5)
  - Hypotension [Not Recovered/Not Resolved]
  - Syncope [Not Recovered/Not Resolved]
  - Dizziness [Not Recovered/Not Resolved]
  - Peripheral coldness [Not Recovered/Not Resolved]
  - Headache [Recovering/Resolving]
